FAERS Safety Report 5019367-9 (Version None)
Quarter: 2006Q2

REPORT INFORMATION
  Report Type: 
  Country: None (occurrence: None)
  Receive Date: 20060601
  Receipt Date: 20060519
  Transmission Date: 20061013
  Serious: Yes (Hospitalization)
  Sender: FDA-Public Use
  Company Number: HQWYE446222MAY06

PATIENT
  Age: 46 Year
  Sex: Male

DRUGS (1)
  1. PROTONIX [Suspect]
     Dosage: 40MG 1X PER 1 DAY, ORAL
     Route: 048
     Dates: start: 20040101, end: 20060501

REACTIONS (1)
  - TENDON RUPTURE [None]
